FAERS Safety Report 8893344 (Version 1)
Quarter: 2012Q4

REPORT INFORMATION
  Report Type: 
  Country: US (occurrence: US)
  Receive Date: 20121108
  Receipt Date: 20121108
  Transmission Date: 20130627
  Serious: No
  Sender: FDA-Public Use
  Company Number: US-BAYER-2012-117077

PATIENT
  Sex: Female

DRUGS (1)
  1. CIPRO [Suspect]
     Indication: URINARY INFECTION
     Dosage: 500 mg, BID
     Route: 048
     Dates: start: 201210

REACTIONS (2)
  - Arthralgia [None]
  - Pain in extremity [None]
